FAERS Safety Report 4613476-1 (Version None)
Quarter: 2005Q1

REPORT INFORMATION
  Report Type: 
  Country: None (occurrence: None)
  Receive Date: 20050321
  Receipt Date: 20050309
  Transmission Date: 20050727
  Serious: Yes (Hospitalization)
  Sender: FDA-Public Use
  Company Number: FR-BRISTOL-MYERS SQUIBB COMPANY-12892907

PATIENT
  Age: 68 Year
  Sex: Male

DRUGS (12)
  1. ELISOR [Suspect]
     Route: 048
     Dates: start: 20030101
  2. PLAVIX [Suspect]
  3. FONZYLANE [Suspect]
     Dates: start: 20030101
  4. KREDEX [Suspect]
     Dates: start: 20030101
  5. XATRAL [Suspect]
     Dates: start: 20030101
  6. ZOLADEX [Suspect]
     Indication: PROSTATE CANCER
     Dates: start: 20030101
  7. ASPEGIC 1000 [Concomitant]
  8. OMEPRAZOLE [Concomitant]
  9. LIBRAX [Concomitant]
  10. LASILIX [Concomitant]
  11. TRIATEC [Concomitant]
  12. DIFFU-K [Concomitant]

REACTIONS (2)
  - ARTERIOSPASM CORONARY [None]
  - MYOCARDIAL INFARCTION [None]
